FAERS Safety Report 16111709 (Version 3)
Quarter: 2019Q2

REPORT INFORMATION
  Report Type: Spontaneous
  Country: RU (occurrence: RU)
  Receive Date: 20190325
  Receipt Date: 20190416
  Transmission Date: 20190711
  Serious: Yes (Death, Other)
  Sender: FDA-Public Use
  Company Number: RU-SA-2019SA081754

PATIENT
  Sex: Male

DRUGS (1)
  1. FABRAZYME [Suspect]
     Active Substance: AGALSIDASE BETA
     Indication: FABRY^S DISEASE
     Dosage: 4 DF, 4 BOTTLES/ MONTH
     Route: 041
     Dates: start: 2016

REACTIONS (2)
  - Cardiac arrest [Fatal]
  - End stage renal disease [Unknown]

NARRATIVE: CASE EVENT DATE: 201812
